FAERS Safety Report 24710326 (Version 2)
Quarter: 2024Q4

REPORT INFORMATION
  Report Type: Spontaneous
  Country: FR (occurrence: FR)
  Receive Date: 20241209
  Receipt Date: 20241221
  Transmission Date: 20250115
  Serious: Yes (Hospitalization, Other)
  Sender: AUROBINDO
  Company Number: FR-AFSSAPS-SE2024000918

PATIENT
  Age: 66 Year
  Sex: Female

DRUGS (3)
  1. LINEZOLID [Suspect]
     Active Substance: LINEZOLID
     Indication: Osteitis
     Dosage: 1200 MILLIGRAM, ONCE A DAY
     Route: 065
     Dates: start: 20241014, end: 20241031
  2. PIPERACILLIN SODIUM\TAZOBACTAM SODIUM [Concomitant]
     Active Substance: PIPERACILLIN SODIUM\TAZOBACTAM SODIUM
     Indication: Osteitis
     Dosage: 12 GRAM, ONCE A DAY(4G X 3)
     Route: 042
     Dates: start: 20241014, end: 20241022
  3. LEVOFLOXACIN [Concomitant]
     Active Substance: LEVOFLOXACIN
     Indication: Osteitis
     Dosage: 500 MILLIGRAM, ONCE A DAY
     Route: 065
     Dates: start: 20241023

REACTIONS (1)
  - Adrenal cortex necrosis [Recovered/Resolved with Sequelae]

NARRATIVE: CASE EVENT DATE: 20241030
